FAERS Safety Report 5759108-0 (Version None)
Quarter: 2008Q2

REPORT INFORMATION
  Report Type: 
  Country: None (occurrence: None)
  Receive Date: 20080604
  Receipt Date: 20080523
  Transmission Date: 20081010
  Serious: Yes (Other)
  Sender: FDA-Public Use
  Company Number: GB-PFIZER INC-2008021175

PATIENT
  Age: 59 Year
  Sex: Female
  Weight: 63.5 kg

DRUGS (1)
  1. CHANTIX [Suspect]
     Indication: SMOKING CESSATION THERAPY
     Route: 048
     Dates: start: 20080119, end: 20080206

REACTIONS (6)
  - AGGRESSION [None]
  - DECREASED ACTIVITY [None]
  - INSOMNIA [None]
  - PANIC ATTACK [None]
  - PARANOIA [None]
  - SOMNOLENCE [None]
